FAERS Safety Report 8263855-9 (Version None)
Quarter: 2012Q2

REPORT INFORMATION
  Report Type: 
  Country: None (occurrence: None)
  Receive Date: 20120405
  Receipt Date: 20120403
  Transmission Date: 20120825
  Serious: Yes (Hospitalization, Disabling)
  Sender: FDA-Public Use
  Company Number: US-MERCK-1111USA03760

PATIENT
  Age: 60 Year
  Sex: Female

DRUGS (9)
  1. BONIVA [Suspect]
     Indication: OSTEOPOROSIS
     Route: 065
     Dates: start: 20090130, end: 20100224
  2. ALBUTEROL [Concomitant]
     Indication: HYPERSENSITIVITY
     Route: 065
     Dates: start: 20060118, end: 20060419
  3. ALLEGRA-D 12 HOUR [Concomitant]
     Indication: HYPERSENSITIVITY
     Route: 065
     Dates: start: 20070924, end: 20080121
  4. CHANTIX [Concomitant]
     Indication: EX-TOBACCO USER
     Route: 065
     Dates: start: 20080604
  5. FOSAMAX PLUS D [Suspect]
     Indication: OSTEOPOROSIS
     Route: 048
     Dates: start: 20060819, end: 20080728
  6. FOSAMAX [Suspect]
     Indication: OSTEOPENIA
     Route: 048
     Dates: start: 20010921, end: 20040124
  7. FOSAMAX [Suspect]
     Route: 048
     Dates: start: 20040221, end: 20060721
  8. BUPROPION HYDROCHLORIDE [Concomitant]
     Indication: EX-TOBACCO USER
     Route: 065
     Dates: start: 20050318, end: 20050101
  9. FOSINOPRIL SODIUM [Concomitant]
     Indication: BLOOD PRESSURE ABNORMAL
     Route: 065
     Dates: start: 20051207, end: 20101201

REACTIONS (28)
  - GASTROOESOPHAGEAL REFLUX DISEASE [None]
  - LOW TURNOVER OSTEOPATHY [None]
  - BLOOD CHOLESTEROL INCREASED [None]
  - TREMOR [None]
  - EROSIVE OESOPHAGITIS [None]
  - DEVICE FAILURE [None]
  - ARTHROPATHY [None]
  - ADVERSE EVENT [None]
  - SINUS DISORDER [None]
  - MUSCLE SPASMS [None]
  - CARDIAC DISORDER [None]
  - FEMORAL NECK FRACTURE [None]
  - INFECTION [None]
  - DRUG INTOLERANCE [None]
  - FEMUR FRACTURE [None]
  - FRACTURE NONUNION [None]
  - SKIN DISORDER [None]
  - DYSPNOEA [None]
  - CORONARY ARTERY DISEASE [None]
  - DEFORMITY [None]
  - FALL [None]
  - ARTHRALGIA [None]
  - INFLAMMATION [None]
  - REFLUX LARYNGITIS [None]
  - BONE DISORDER [None]
  - BRONCHOSPASM [None]
  - ANXIETY [None]
  - TOOTH DISORDER [None]
